FAERS Safety Report 5675098-3 (Version None)
Quarter: 2008Q1

REPORT INFORMATION
  Report Type: 
  Country: None (occurrence: None)
  Receive Date: 20080320
  Receipt Date: 20080312
  Transmission Date: 20080703
  Serious: Yes (Death)
  Sender: FDA-Public Use
  Company Number: US-JNJFOC-20080304413

PATIENT
  Age: 30 Year
  Sex: Male

DRUGS (6)
  1. DURAGESIC-100 [Suspect]
     Indication: BACK PAIN
     Route: 065
  2. OXYCONTIN [Suspect]
     Indication: BACK PAIN
     Route: 065
  3. PERCOCET [Suspect]
     Indication: BACK PAIN
     Route: 065
  4. DILAUDID [Suspect]
     Indication: BACK PAIN
     Route: 065
  5. KLONOPIN [Suspect]
     Indication: BACK PAIN
     Route: 065
  6. METHADON HCL TAB [Suspect]
     Indication: DRUG USE FOR UNKNOWN INDICATION
     Route: 065

REACTIONS (2)
  - CARDIAC ARREST [None]
  - HEPATIC FAILURE [None]
